FAERS Safety Report 5179106-8 (Version None)
Quarter: 2006Q4

REPORT INFORMATION
  Report Type: 
  Country: None (occurrence: None)
  Receive Date: 20061219
  Receipt Date: 20040715
  Transmission Date: 20070319
  Serious: Yes (Life-Threatening, Hospitalization, Disabling, Congenital Anomaly, Other)
  Sender: FDA-Public Use
  Company Number: 200415406US

PATIENT
  Sex: Female
  Weight: 2.78 kg

DRUGS (1)
  1. LOVENOX [Suspect]
     Dosage: DOSE: UNK
     Route: 065
     Dates: start: 20030201, end: 20030724

REACTIONS (46)
  - ACTIVATED PARTIAL THROMBOPLASTIN TIME PROLONGED [None]
  - BLEPHAROSPASM [None]
  - BLOOD CREATININE INCREASED [None]
  - BLOOD FIBRINOGEN INCREASED [None]
  - BLOOD GASES ABNORMAL [None]
  - BLOOD POTASSIUM INCREASED [None]
  - BLOOD UREA INCREASED [None]
  - CEREBRAL INFARCTION [None]
  - CEREBRAL PALSY [None]
  - CONVULSION [None]
  - COOMBS TEST POSITIVE [None]
  - CYANOSIS NEONATAL [None]
  - DISABLED RELATIVE [None]
  - DRUG EXPOSURE DURING PREGNANCY [None]
  - EYE HAEMORRHAGE [None]
  - FALL [None]
  - FOETAL HEART RATE DECELERATION [None]
  - HAEMATOCRIT INCREASED [None]
  - HAEMOGLOBIN INCREASED [None]
  - HAEMORRHAGE [None]
  - HEMIPARESIS [None]
  - HIGH-PITCHED CRYING [None]
  - HYPOACUSIS [None]
  - HYPOCALCAEMIA [None]
  - HYPOXIA [None]
  - INTRAVENTRICULAR HAEMORRHAGE [None]
  - IRRITABILITY [None]
  - LABOUR COMPLICATION [None]
  - LETHARGY [None]
  - MECONIUM STAIN [None]
  - MENTAL RETARDATION SEVERITY UNSPECIFIED [None]
  - MUSCLE TWITCHING [None]
  - NASAL FLARING [None]
  - NERVOUS SYSTEM DISORDER [None]
  - NEUROPATHY [None]
  - NYSTAGMUS [None]
  - PROTHROMBIN TIME PROLONGED [None]
  - RETINAL DETACHMENT [None]
  - SEPSIS [None]
  - STRIDOR [None]
  - SUBARACHNOID HAEMORRHAGE [None]
  - SUBDURAL HAEMORRHAGE [None]
  - THROMBOCYTOPENIA [None]
  - TRAUMATIC BRAIN INJURY [None]
  - VISUAL DISTURBANCE [None]
  - WHITE BLOOD CELL COUNT ABNORMAL [None]
